FAERS Safety Report 14488257 (Version 1)
Quarter: 2018Q1

REPORT INFORMATION
  Report Type: Spontaneous
  Country: US (occurrence: US)
  Receive Date: 20180203
  Receipt Date: 20180203
  Transmission Date: 20180509
  Serious: Yes (Hospitalization)
  Sender: FDA-Public Use
  Company Number: None

PATIENT
  Age: 70 Year
  Sex: Male

DRUGS (2)
  1. REVLIMID [Suspect]
     Active Substance: LENALIDOMIDE
     Indication: PLASMA CELL MYELOMA
     Dosage: 10MG 12.5MGDAILYX21D/28D ORAL
     Route: 048
     Dates: start: 20171017, end: 20180109
  2. REVLIMID [Suspect]
     Active Substance: LENALIDOMIDE
     Indication: PLASMA CELL MYELOMA
     Route: 048
     Dates: start: 20171017, end: 20180109

REACTIONS (3)
  - Sepsis [None]
  - Tinnitus [None]
  - Pancytopenia [None]

NARRATIVE: CASE EVENT DATE: 20180111
